FAERS Safety Report 12714888 (Version 2)
Quarter: 2016Q3

REPORT INFORMATION
  Report Type: Report from Study
  Country: MX (occurrence: MX)
  Receive Date: 20160905
  Receipt Date: 20160909
  Transmission Date: 20161109
  Serious: Yes (Death)
  Sender: FDA-Public Use
  Company Number: PHHY2016MX119216

PATIENT
  Age: 90 Year
  Sex: Female

DRUGS (9)
  1. SERTRALINE [Concomitant]
     Active Substance: SERTRALINE HYDROCHLORIDE
     Indication: DEPRESSION
     Dosage: 1 DF, QD
     Route: 065
  2. AMIODARONE [Concomitant]
     Active Substance: AMIODARONE
     Indication: ARRHYTHMIA
     Dosage: 0.5 UNK, TIW
     Route: 065
  3. OLANZAPINE. [Concomitant]
     Active Substance: OLANZAPINE
     Indication: INSOMNIA
     Dosage: 1 DF, QD
     Route: 065
  4. OMNITROPE [Suspect]
     Active Substance: SOMATROPIN
     Indication: HYPERTENSION
  5. TELMISARTAN. [Concomitant]
     Active Substance: TELMISARTAN
     Indication: HYPERTENSION
     Dosage: 1 DF, BID
     Route: 065
  6. OMNITROPE [Suspect]
     Active Substance: SOMATROPIN
     Indication: SENILE DEMENTIA
     Dosage: 1 MG, QD
     Route: 065
     Dates: start: 20160531, end: 20160821
  7. OMNITROPE [Suspect]
     Active Substance: SOMATROPIN
     Indication: GENERAL PHYSICAL HEALTH DETERIORATION
  8. OMNITROPE [Suspect]
     Active Substance: SOMATROPIN
     Indication: ARRHYTHMIA
  9. SOMAZINA [Concomitant]
     Active Substance: CITICOLINE
     Indication: MENTAL IMPAIRMENT
     Dosage: 1 DF, QD
     Route: 065

REACTIONS (2)
  - Intentional product misuse [Fatal]
  - Myocardial infarction [Fatal]

NARRATIVE: CASE EVENT DATE: 20160822
